FAERS Safety Report 21975999 (Version 2)
Quarter: 2023Q1

REPORT INFORMATION
  Report Type: Spontaneous
  Country: US (occurrence: US)
  Receive Date: 20230210
  Receipt Date: 20230215
  Transmission Date: 20230418
  Serious: No
  Sender: FDA-Public Use
  Company Number: US-JNJFOC-20230201357

PATIENT
  Age: 63 Year
  Sex: Female
  Weight: 57.1 kg

DRUGS (2)
  1. OPSUMIT [Suspect]
     Active Substance: MACITENTAN
     Indication: Product used for unknown indication
     Route: 048
  2. TREPROSTINIL SODIUM [Suspect]
     Active Substance: TREPROSTINIL SODIUM
     Indication: Pulmonary arterial hypertension
     Dosage: DOSE: 36UG (6 BREATH), FOUR TIMES A DAY
     Route: 065
     Dates: start: 20221003

REACTIONS (2)
  - Dizziness [Unknown]
  - Blood pressure increased [Unknown]
